FAERS Safety Report 12825512 (Version 1)
Quarter: 2016Q4

REPORT INFORMATION
  Report Type: Spontaneous
  Country: US (occurrence: US)
  Receive Date: 20161007
  Receipt Date: 20161007
  Transmission Date: 20170207
  Serious: No
  Sender: FDA-Public Use
  Company Number: US-BAYER-2016-193195

PATIENT
  Age: 40 Year
  Sex: Male

DRUGS (1)
  1. MAGNEVIST [Suspect]
     Active Substance: GADOPENTETATE DIMEGLUMINE
     Indication: VERTIGO
     Dosage: 19 ML, ONCE
     Route: 042
     Dates: start: 20161005, end: 20161005

REACTIONS (2)
  - Vomiting [None]
  - Dizziness [None]

NARRATIVE: CASE EVENT DATE: 20161005
